FAERS Safety Report 10480624 (Version 1)
Quarter: 2014Q3

REPORT INFORMATION
  Report Type: Spontaneous
  Country: US (occurrence: None)
  Receive Date: 20140904
  Receipt Date: 20140904
  Transmission Date: 20150326
  Serious: No
  Sender: FDA-Public Use
  Company Number: 228764

PATIENT
  Age: 49 Year
  Sex: Female

DRUGS (1)
  1. PICATO [Suspect]
     Active Substance: INGENOL MEBUTATE
     Indication: PRECANCEROUS CELLS PRESENT
     Dosage: ONCE DAILY X 3 DAYS
     Route: 061
     Dates: start: 20140702, end: 20140704

REACTIONS (4)
  - Application site haemorrhage [None]
  - Incorrect dose administered [None]
  - Application site dryness [None]
  - Application site vesicles [None]

NARRATIVE: CASE EVENT DATE: 20140702
